FAERS Safety Report 16790492 (Version 14)
Quarter: 2022Q4

REPORT INFORMATION
  Report Type: Spontaneous
  Country: US (occurrence: US)
  Receive Date: 20190910
  Receipt Date: 20221117
  Transmission Date: 20230113
  Serious: No
  Sender: FDA-Public Use
  Company Number: US-PFIZER INC-2019385677

PATIENT
  Age: 65 Year
  Sex: Male
  Weight: 57.61 kg

DRUGS (6)
  1. RAPAMUNE [Suspect]
     Active Substance: SIROLIMUS
     Indication: Stem cell transplant
     Dosage: 0.5 MG, 1X/DAY
     Route: 048
     Dates: start: 20150828
  2. RAPAMUNE [Suspect]
     Active Substance: SIROLIMUS
     Indication: Graft versus host disease
     Dosage: AT 0.5 MG TWICE A DAY (ON MO/WE/FR) AND AT 0.5 MG ONCE A DAY (ON SA/SU/TU/TH)
     Dates: start: 201908
  3. RAPAMUNE [Suspect]
     Active Substance: SIROLIMUS
     Indication: Immunosuppression
     Dosage: 2 DF, (TAKE 2 TABLETS BY MOUTH ON MONDAYS, WEDNESDAYS AND FRIDAYS)
     Route: 048
  4. RAPAMUNE [Suspect]
     Active Substance: SIROLIMUS
     Dosage: (TAKE 1 TABLET BY MOUTH ON SATURDAYS, SUNDAYS, TUESDAYS AND THURSDAYS)
     Route: 048
  5. RAPAMUNE [Suspect]
     Active Substance: SIROLIMUS
     Dosage: 0.5 MG (ON MO/WE/FR TAKE 2 TABS, AND ON ST/SU/TU/TH TAKE 1 TAB)
     Route: 048
  6. RAPAMUNE [Suspect]
     Active Substance: SIROLIMUS
     Dosage: 0.5 MG, DAILY
     Route: 048

REACTIONS (6)
  - Off label use [Unknown]
  - Drug level decreased [Unknown]
  - Intentional product misuse [Unknown]
  - Laboratory test abnormal [Unknown]
  - Amnesia [Unknown]
  - Cognitive disorder [Unknown]

NARRATIVE: CASE EVENT DATE: 20150801
